FAERS Safety Report 16027965 (Version 1)
Quarter: 2019Q1

REPORT INFORMATION
  Report Type: Spontaneous
  Country: US (occurrence: US)
  Receive Date: 20190304
  Receipt Date: 20190304
  Transmission Date: 20190418
  Serious: No
  Sender: FDA-Public Use
  Company Number: US-TRIS PHARMA, INC.-2019TRISPO00132

PATIENT

DRUGS (2)
  1. DEXTROMETHORPHAN POLISTIREX [Suspect]
     Active Substance: DEXTROMETHORPHAN HYDROBROMIDE
     Indication: COUGH
     Dosage: 18 (3 ML) MG, SINGLE
     Route: 048
     Dates: start: 20190121, end: 20190121
  2. DEXTROMETHORPHAN POLISTIREX [Suspect]
     Active Substance: DEXTROMETHORPHAN HYDROBROMIDE
     Dosage: 90 MG (15 ML), SINGLE
     Route: 048
     Dates: start: 20190122, end: 20190122

REACTIONS (3)
  - Feeling drunk [Recovered/Resolved]
  - Product administered to patient of inappropriate age [None]
  - Accidental exposure to product by child [Unknown]

NARRATIVE: CASE EVENT DATE: 20190121
